FAERS Safety Report 20087424 (Version 1)
Quarter: 2021Q4

REPORT INFORMATION
  Report Type: Spontaneous
  Country: FR (occurrence: FR)
  Receive Date: 20211118
  Receipt Date: 20211118
  Transmission Date: 20220303
  Serious: Yes (Hospitalization, Disabling, Congenital Anomaly, Other)
  Sender: FDA-Public Use
  Company Number: FR-ABBVIE-21K-056-4163797-00

PATIENT
  Sex: Male
  Weight: 2.41 kg

DRUGS (1)
  1. VALPROATE SODIUM [Suspect]
     Active Substance: VALPROATE SODIUM
     Indication: Maternal exposure timing unspecified
     Route: 064

REACTIONS (29)
  - Premature baby [Unknown]
  - Growth retardation [Unknown]
  - Ankyloglossia congenital [Unknown]
  - Foot deformity [Unknown]
  - Intellectual disability [Unknown]
  - Learning disorder [Unknown]
  - Autism spectrum disorder [Unknown]
  - Dysmorphism [Unknown]
  - Plagiocephaly [Unknown]
  - Communication disorder [Unknown]
  - Developmental delay [Unknown]
  - Psychomotor retardation [Unknown]
  - Language disorder [Unknown]
  - Autism spectrum disorder [Unknown]
  - Echolalia [Unknown]
  - Hypotonia [Unknown]
  - Motor dysfunction [Unknown]
  - Joint laxity [Unknown]
  - Fine motor skill dysfunction [Unknown]
  - Social problem [Unknown]
  - Developmental delay [Unknown]
  - Disturbance in social behaviour [Unknown]
  - Hypoacusis [Unknown]
  - Auditory disorder [Unknown]
  - Ear infection [Unknown]
  - Ear, nose and throat disorder [Unknown]
  - Ear, nose and throat disorder [Unknown]
  - Ear, nose and throat disorder [Unknown]
  - Foetal exposure during pregnancy [Unknown]

NARRATIVE: CASE EVENT DATE: 20090401
